FAERS Safety Report 10065941 (Version 1)
Quarter: 2014Q1

REPORT INFORMATION
  Report Type: Spontaneous
  Country: US (occurrence: None)
  Receive Date: 20140328
  Receipt Date: 20140328
  Transmission Date: 20141002
  Serious: No
  Sender: FDA-Public Use
  Company Number: 1000052273

PATIENT
  Age: 85 Year
  Sex: Male

DRUGS (3)
  1. LINZESS (LINACLOTIDE) (290 MICROGRAM, CAPSULES) [Suspect]
     Indication: CONSTIPATION
     Route: 048
     Dates: start: 201311
  2. CLONIDINE (CLONIDINE) [Concomitant]
  3. LASIX (FUROSEMIDE) (FUROSEMIDE) [Concomitant]

REACTIONS (6)
  - Intentional drug misuse [None]
  - Abdominal pain upper [None]
  - Flatulence [None]
  - Drug ineffective [None]
  - Intentional overdose [None]
  - Diarrhoea [None]
